FAERS Safety Report 24806322 (Version 1)
Quarter: 2025Q1

REPORT INFORMATION
  Report Type: Spontaneous
  Country: US (occurrence: US)
  Receive Date: 20250103
  Receipt Date: 20250103
  Transmission Date: 20250409
  Serious: Yes (Other)
  Sender: NOVARTIS
  Company Number: US-002147023-NVSC2024US245909

PATIENT

DRUGS (1)
  1. COSENTYX [Suspect]
     Active Substance: SECUKINUMAB
     Indication: Product used for unknown indication
     Route: 065

REACTIONS (13)
  - Psoriatic arthropathy [Unknown]
  - Onychoclasis [Unknown]
  - Tendonitis [Unknown]
  - Joint swelling [Unknown]
  - Osteoarthritis [Unknown]
  - Swelling [Unknown]
  - Joint injury [Unknown]
  - Tendon injury [Unknown]
  - Ligament rupture [Unknown]
  - Muscle disorder [Unknown]
  - Pain in extremity [Unknown]
  - Arthralgia [Unknown]
  - Gait disturbance [Unknown]
